FAERS Safety Report 9652359 (Version 1)
Quarter: 2013Q4

REPORT INFORMATION
  Report Type: Spontaneous
  Country: US (occurrence: US)
  Receive Date: 20131029
  Receipt Date: 20131029
  Transmission Date: 20140711
  Serious: No
  Sender: FDA-Public Use
  Company Number: US-BIOGENIDEC-2013BI075943

PATIENT
  Age: 70 Year
  Sex: Female

DRUGS (5)
  1. TECFIDERA [Suspect]
     Indication: MULTIPLE SCLEROSIS
     Route: 048
     Dates: start: 20130624
  2. MAGNESIUM GLUCONATE [Concomitant]
  3. ONDANSETRON HCL [Concomitant]
  4. VITAMIN B-12 [Concomitant]
  5. OMEPRAZOLE [Concomitant]

REACTIONS (1)
  - Nausea [Unknown]
